FAERS Safety Report 12458166 (Version 1)
Quarter: 2016Q2

REPORT INFORMATION
  Report Type: Spontaneous
  Country: US (occurrence: US)
  Receive Date: 20160613
  Receipt Date: 20160613
  Transmission Date: 20160815
  Serious: No
  Sender: FDA-Public Use
  Company Number: US-TEVA-660954USA

PATIENT
  Sex: Male
  Weight: 124.85 kg

DRUGS (2)
  1. DULOXETINE. [Suspect]
     Active Substance: DULOXETINE
     Indication: MUSCULOSKELETAL PAIN
     Dosage: 20 MILLIGRAM DAILY; INITIALLY 60 MG
     Route: 065
  2. DULOXETINE. [Suspect]
     Active Substance: DULOXETINE
     Indication: BALANCE DISORDER

REACTIONS (3)
  - Product use issue [Unknown]
  - Weight increased [Unknown]
  - Intentional product use issue [Unknown]
